FAERS Safety Report 22263625 (Version 1)
Quarter: 2023Q2

REPORT INFORMATION
  Report Type: Spontaneous
  Country: US (occurrence: US)
  Receive Date: 20230428
  Receipt Date: 20230428
  Transmission Date: 20230721
  Serious: No
  Sender: FDA-Public Use
  Company Number: US-009507513-2304USA010551

PATIENT
  Age: 76 Year
  Sex: Female
  Weight: 60.317 kg

DRUGS (2)
  1. TICE BCG [Suspect]
     Active Substance: BACILLUS CALMETTE-GUERIN SUBSTRAIN TICE LIVE ANTIGEN
     Indication: Bladder cancer
     Dosage: 81 MILLIGRAM (ALSO REPORTED 40 MG DOSES IN 10CC OF SALINE), QW
     Route: 043
     Dates: start: 201607, end: 201608
  2. TICE BCG [Suspect]
     Active Substance: BACILLUS CALMETTE-GUERIN SUBSTRAIN TICE LIVE ANTIGEN
     Dosage: 81 MILLIGRAM WITH MAINTENANCE AT 3-MONTH INTERVASL
     Route: 043

REACTIONS (1)
  - Drug ineffective [Unknown]

NARRATIVE: CASE EVENT DATE: 20160801
